FAERS Safety Report 13759169 (Version 3)
Quarter: 2017Q3

REPORT INFORMATION
  Report Type: Spontaneous
  Country: GB (occurrence: GB)
  Receive Date: 20170717
  Receipt Date: 20170911
  Transmission Date: 20171127
  Serious: Yes (Hospitalization, Other)
  Sender: FDA-Public Use
  Company Number: GB-PURDUE-GBR-2017-0046649

PATIENT

DRUGS (11)
  1. POTASSIUM CHLORIDE. [Concomitant]
     Active Substance: POTASSIUM CHLORIDE
     Dosage: 4 DF, DAILY
  2. LECICARBON                         /05510501/ [Concomitant]
     Dosage: 2 DF, DAILY
  3. PRUCALOPRIDE [Concomitant]
     Active Substance: PRUCALOPRIDE
     Dosage: 4 MG, DAILY
  4. OXYCODONE HYDROCHLORIDE. [Suspect]
     Active Substance: OXYCODONE HYDROCHLORIDE
     Dosage: 40 MG, DAILY  [STRENGTH 5MG]
     Route: 065
     Dates: start: 201406
  5. OXYCODONE HYDROCHLORIDE. [Suspect]
     Active Substance: OXYCODONE HYDROCHLORIDE
     Indication: PANCREATITIS ACUTE
     Dosage: 30 MG, DAILY [5 MG STRENGTH]
     Route: 065
  6. MACROGOL 3350 [Concomitant]
     Active Substance: POLYETHYLENE GLYCOL 3350
     Dosage: 4 DF, DAILY
  7. DIAZEPAM. [Concomitant]
     Active Substance: DIAZEPAM
     Indication: DEPRESSION
  8. DIAZEPAM. [Concomitant]
     Active Substance: DIAZEPAM
     Indication: ANXIETY
     Dosage: 2 MG, DAILY
  9. DIAZEPAM. [Concomitant]
     Active Substance: DIAZEPAM
     Indication: INSOMNIA
  10. LANSOPRAZOLE. [Concomitant]
     Active Substance: LANSOPRAZOLE
     Dosage: 30 MG, DAILY
  11. SIMVASTATIN. [Concomitant]
     Active Substance: SIMVASTATIN
     Dosage: 20 MG, DAILY

REACTIONS (24)
  - Sleep disorder [Unknown]
  - Erectile dysfunction [Not Recovered/Not Resolved]
  - Eating disorder [Unknown]
  - Mood swings [Unknown]
  - Headache [Unknown]
  - Constipation [Unknown]
  - Megacolon [Unknown]
  - Urinary hesitation [Unknown]
  - Dry mouth [Unknown]
  - Insomnia [Unknown]
  - Tremor [Unknown]
  - Suicidal ideation [Unknown]
  - Drug dependence [Unknown]
  - Fatigue [Unknown]
  - Pelvic floor dyssynergia [Unknown]
  - Dysuria [Unknown]
  - Night sweats [Unknown]
  - Drug monitoring procedure not performed [Unknown]
  - Narcotic bowel syndrome [Unknown]
  - Muscle twitching [Unknown]
  - Irritability [Unknown]
  - Dyschezia [Not Recovered/Not Resolved]
  - Depression [Unknown]
  - Hallucination [Unknown]

NARRATIVE: CASE EVENT DATE: 201406
